FAERS Safety Report 4342345-X (Version None)
Quarter: 2004Q2

REPORT INFORMATION
  Report Type: 
  Country: None (occurrence: None)
  Receive Date: 20040416
  Receipt Date: 20040402
  Transmission Date: 20050107
  Serious: Yes (Hospitalization, Other)
  Sender: FDA-Public Use
  Company Number: USA-2002-0001038

PATIENT
  Age: 43 Year
  Sex: Female
  Weight: 40.6 kg

DRUGS (30)
  1. OXYCONTIN [Suspect]
     Indication: PAIN
     Dosage: 40 MG, SEE TEXT,ORAL
     Route: 048
     Dates: start: 19990706, end: 20021101
  2. OXYCONTIN [Suspect]
     Indication: PAIN
     Dosage: 80 MG, SEE TEXT, ORAL
     Route: 048
     Dates: start: 20020823, end: 20021101
  3. OXYCODONE HCL [Suspect]
     Indication: PAIN
     Dosage: 10 MG, QID, PRN, ORAL
     Route: 048
     Dates: end: 20021101
  4. ETRAFON [Suspect]
     Dosage: TABLET, ORAL
     Route: 048
     Dates: start: 20000823
  5. KLONOPIN [Concomitant]
  6. TOPAMAX [Concomitant]
  7. REMERON [Concomitant]
  8. ZOLOFT [Concomitant]
  9. TEGRETOL [Concomitant]
  10. ZESTRIL [Concomitant]
  11. ELAVIL [Concomitant]
  12. PREVACID [Concomitant]
  13. VALIUM [Concomitant]
  14. ZANAFLEX [Concomitant]
  15. PREMARIN [Concomitant]
  16. ESTRATEST [Concomitant]
  17. RISPERDAL [Concomitant]
  18. XANAX [Concomitant]
  19. NEURONTIN [Concomitant]
  20. DURAGESIC [Concomitant]
  21. DYAZIDE [Concomitant]
  22. PEPCID [Concomitant]
  23. CELEBREX [Concomitant]
  24. ZYRTEC [Concomitant]
  25. SOMA [Concomitant]
  26. LORCET-HD [Concomitant]
  27. VISTARIL [Concomitant]
  28. FLEXERIL [Concomitant]
  29. PROCARDIA XL [Concomitant]
  30. REGLAN [Concomitant]

REACTIONS (51)
  - ABDOMINAL PAIN [None]
  - ANXIETY [None]
  - ASTHENIA [None]
  - BACK PAIN [None]
  - BLISTER [None]
  - BURNING SENSATION [None]
  - BUTTOCK PAIN [None]
  - CHEST PAIN [None]
  - CONSTIPATION [None]
  - DEPRESSION [None]
  - DRUG DEPENDENCE [None]
  - DRUG INEFFECTIVE [None]
  - DRUG INTERACTION [None]
  - DRUG WITHDRAWAL SYNDROME [None]
  - DYSHIDROSIS [None]
  - DYSKINESIA [None]
  - DYSPEPSIA [None]
  - DYSPHONIA [None]
  - DYSPNOEA EXERTIONAL [None]
  - DYSTONIA [None]
  - ERYTHEMA [None]
  - FALL [None]
  - GALACTORRHOEA [None]
  - GASTROENTERITIS HELICOBACTER [None]
  - GASTROINTESTINAL HAEMORRHAGE [None]
  - GASTROOESOPHAGEAL REFLUX DISEASE [None]
  - HAEMATOCHEZIA [None]
  - HEADACHE [None]
  - HEART RATE INCREASED [None]
  - HIATUS HERNIA [None]
  - HOARSENESS [None]
  - HYPOAESTHESIA [None]
  - IMPAIRED GASTRIC EMPTYING [None]
  - LARYNGITIS [None]
  - LARYNGOSPASM [None]
  - MELANOSIS COLI [None]
  - MUSCLE CRAMP [None]
  - MUSCLE SPASMS [None]
  - NAUSEA [None]
  - PAIN EXACERBATED [None]
  - PRURITUS [None]
  - RECTOCELE [None]
  - RHINITIS ALLERGIC [None]
  - SINUSITIS [None]
  - URINARY INCONTINENCE [None]
  - URINARY TRACT INFECTION [None]
  - URTICARIA [None]
  - VAGINAL CANDIDIASIS [None]
  - VAGINAL INFECTION [None]
  - VOCAL CORD DISORDER [None]
  - WEIGHT INCREASED [None]
